FAERS Safety Report 5132626-4 (Version None)
Quarter: 2006Q4

REPORT INFORMATION
  Report Type: 
  Country: None (occurrence: None)
  Receive Date: 20061017
  Receipt Date: 20061002
  Transmission Date: 20070319
  Serious: Yes (Death, Life-Threatening, Hospitalization)
  Sender: FDA-Public Use
  Company Number: FR200610000034

PATIENT
  Age: 39 Year
  Sex: Female
  Weight: 70 kg

DRUGS (13)
  1. XIGRIS [Suspect]
     Indication: SEPSIS
     Dosage: 165 MG, DAILY (1/D), INTRAVENOUS
     Route: 042
     Dates: start: 20060726, end: 20060729
  2. DOBUTREX (DOBUTAMINE HYDROCHLORIDE FORMULATION) [Concomitant]
  3. CIPROFLOXACIN HCL [Concomitant]
  4. TAZOCILLINE (PIPERACILLIN SODIUM, TAZOBACTAM SODIUM) [Concomitant]
  5. FLUCONAZOLE [Concomitant]
  6. VANCOMYCIN [Concomitant]
  7. ROCEPHIN [Concomitant]
  8. TOBRAMYCIN SULFATE [Concomitant]
  9. EPINEPHRINE [Concomitant]
  10. NORADRENALINE (NOREPINEPHRINE) [Concomitant]
  11. LASIX [Concomitant]
  12. IMURAN [Concomitant]
  13. CORTICOSTEROIDS [Concomitant]

REACTIONS (5)
  - CONVERSION DISORDER [None]
  - CONVULSION [None]
  - HAEMORRHAGE INTRACRANIAL [None]
  - NERVOUS SYSTEM DISORDER [None]
  - THROMBOCYTOPENIA [None]
